FAERS Safety Report 8507777-4 (Version None)
Quarter: 2012Q3

REPORT INFORMATION
  Report Type: 
  Country: None (occurrence: None)
  Receive Date: 20120709
  Receipt Date: 20120709
  Transmission Date: 20120928
  Serious: Yes (Other)
  Sender: FDA-Public Use
  Company Number: None

PATIENT
  Age: 40 Year
  Sex: Female
  Weight: 88.4514 kg

DRUGS (2)
  1. CYMBALTA [Suspect]
     Indication: DEPRESSION
     Dosage: 60MG 1 TIMES A DAY PO
     Route: 048
     Dates: start: 20120521, end: 20120621
  2. CYMBALTA [Suspect]
     Indication: ANXIETY
     Dosage: 60MG 1 TIMES A DAY PO
     Route: 048
     Dates: start: 20120521, end: 20120621

REACTIONS (15)
  - NIGHT SWEATS [None]
  - DRUG WITHDRAWAL SYNDROME [None]
  - FEELING DRUNK [None]
  - SPEECH DISORDER [None]
  - EMOTIONAL DISORDER [None]
  - DEPRESSION [None]
  - POVERTY OF THOUGHT CONTENT [None]
  - BALANCE DISORDER [None]
  - VERTIGO [None]
  - HOT FLUSH [None]
  - SUICIDAL IDEATION [None]
  - FATIGUE [None]
  - FEELING ABNORMAL [None]
  - FEELING HOT [None]
  - ANGER [None]
